FAERS Safety Report 9741399 (Version 1)
Quarter: 2013Q4

REPORT INFORMATION
  Report Type: Spontaneous
  Country: US (occurrence: US)
  Receive Date: 20131209
  Receipt Date: 20131209
  Transmission Date: 20140711
  Serious: No
  Sender: FDA-Public Use
  Company Number: US-TEVA-448798USA

PATIENT
  Sex: 0

DRUGS (1)
  1. COPAXONE [Suspect]

REACTIONS (4)
  - Injection site reaction [Unknown]
  - Feeling abnormal [Unknown]
  - Injection site pain [Unknown]
  - Fatigue [Unknown]
